FAERS Safety Report 15505675 (Version 1)
Quarter: 2018Q4

REPORT INFORMATION
  Report Type: Spontaneous
  Country: US (occurrence: US)
  Receive Date: 20181016
  Receipt Date: 20181016
  Transmission Date: 20190205
  Serious: Yes (Other)
  Sender: FDA-Public Use
  Company Number: US-SUN PHARMACEUTICAL INDUSTRIES LTD-2017US-156041

PATIENT
  Sex: Male

DRUGS (4)
  1. GABAPENTIN. [Suspect]
     Active Substance: GABAPENTIN
     Dosage: 1600 MG, 1600 MG DAILY
     Route: 065
  2. ZITHROMAX [Concomitant]
     Active Substance: AZITHROMYCIN DIHYDRATE
     Indication: PRODUCT USED FOR UNKNOWN INDICATION
     Route: 065
  3. GABAPENTIN. [Suspect]
     Active Substance: GABAPENTIN
     Indication: NEUROPATHY PERIPHERAL
     Dosage: 4 DF, QID
     Route: 065
     Dates: start: 2010
  4. GABAPENTIN. [Suspect]
     Active Substance: GABAPENTIN
     Dosage: 3200MG - 4800 MG, DAILY
     Route: 065

REACTIONS (3)
  - Antisocial behaviour [Unknown]
  - Suicidal ideation [Unknown]
  - Drug ineffective [Unknown]
